FAERS Safety Report 9681270 (Version 2)
Quarter: 2013Q4

REPORT INFORMATION
  Report Type: Spontaneous
  Country: BE (occurrence: BE)
  Receive Date: 20131111
  Receipt Date: 20131213
  Transmission Date: 20140711
  Serious: Yes (Hospitalization)
  Sender: FDA-Public Use
  Company Number: PHHY2013BE125545

PATIENT
  Sex: Female

DRUGS (1)
  1. ATORVASTATIN SANDOZ [Suspect]
     Dosage: 20 MG
     Route: 048

REACTIONS (2)
  - Gastrointestinal disorder [Unknown]
  - Dehydration [Unknown]
